FAERS Safety Report 18498203 (Version 2)
Quarter: 2021Q1

REPORT INFORMATION
  Report Type: Spontaneous
  Country: US (occurrence: US)
  Receive Date: 20201112
  Receipt Date: 20210115
  Transmission Date: 20210419
  Serious: Yes (Hospitalization, Other)
  Sender: FDA-Public Use
  Company Number: US-009507513-2011USA005058

PATIENT
  Sex: Female
  Weight: 140 kg

DRUGS (6)
  1. PROVENTIL [Concomitant]
     Active Substance: ALBUTEROL
     Dosage: UNK
  2. TOPAMAX [Concomitant]
     Active Substance: TOPIRAMATE
     Dosage: UNK
  3. NEXPLANON [Suspect]
     Active Substance: ETONOGESTREL
     Indication: CONTRACEPTION
     Dosage: 1 IMPLANT (68 MG) FOR 3 YEARS
     Route: 059
     Dates: start: 20190830, end: 20201105
  4. NEXPLANON [Suspect]
     Active Substance: ETONOGESTREL
     Dosage: 1 IMPLANT EVERY 3 YEARS
     Route: 059
  5. FLOVENT [Concomitant]
     Active Substance: FLUTICASONE PROPIONATE
     Dosage: UNK
  6. LEXAPRO [Concomitant]
     Active Substance: ESCITALOPRAM OXALATE
     Dosage: UNK

REACTIONS (2)
  - Device breakage [Recovered/Resolved]
  - Anaphylactic reaction [Recovered/Resolved]

NARRATIVE: CASE EVENT DATE: 2020
